FAERS Safety Report 6234080-8 (Version None)
Quarter: 2009Q2

REPORT INFORMATION
  Report Type: 
  Country: None (occurrence: None)
  Receive Date: 20090612
  Receipt Date: 20090601
  Transmission Date: 20091009
  Serious: Yes (Death, Hospitalization, Other)
  Sender: FDA-Public Use
  Company Number: POMP-1000078

PATIENT
  Age: 8 Month
  Sex: Male

DRUGS (18)
  1. MYOZYME [Suspect]
     Indication: GLYCOGEN STORAGE DISEASE TYPE II
     Dosage: 20 MG/KG, Q2W, INTRAVENOUS
     Route: 042
     Dates: start: 20080209, end: 20080223
  2. CAPTOPRIL [Concomitant]
  3. FUROSEMIDE [Concomitant]
  4. SPIRONOLACTONE [Concomitant]
  5. POTASSIUM CHLORIDE [Concomitant]
  6. HYDROCHLOROTHIAZIDE [Concomitant]
  7. CARVEDILOL [Concomitant]
  8. DIAZEPAM [Concomitant]
  9. CEFEPIME [Concomitant]
  10. MIDAZOLAM HCL [Concomitant]
  11. KETAMINE (KETAMINE) [Concomitant]
  12. ROCURONIUM BROMIDE [Concomitant]
  13. EPINEPHRINE [Concomitant]
  14. ONDANSETRON HCL [Concomitant]
  15. BENADRYL [Concomitant]
  16. DIPYRONE (METAMIZOLE SODIUM) [Concomitant]
  17. ACETAMINOPHEN [Concomitant]
  18. METHYLPREDNISOLONE [Concomitant]

REACTIONS (34)
  - BRADYCARDIA [None]
  - BRAIN HYPOXIA [None]
  - BRONCHOPNEUMONIA [None]
  - CARDIAC FAILURE [None]
  - CARDIO-RESPIRATORY ARREST [None]
  - CIRCULATORY COLLAPSE [None]
  - CONSTIPATION [None]
  - CONVULSION [None]
  - CYANOSIS [None]
  - CYTOMEGALOVIRUS INFECTION [None]
  - DIARRHOEA [None]
  - EJECTION FRACTION DECREASED [None]
  - FEEDING DISORDER [None]
  - HEPATOMEGALY [None]
  - HYPOSPADIAS [None]
  - HYPOXIA [None]
  - INFUSION RELATED REACTION [None]
  - INTERCOSTAL RETRACTION [None]
  - LEFT VENTRICULAR HYPERTROPHY [None]
  - LYMPHOID TISSUE HYPERPLASIA [None]
  - MUSCLE HYPERTROPHY [None]
  - OXYGEN SATURATION DECREASED [None]
  - PALLOR [None]
  - PAPILLARY MUSCLE DISORDER [None]
  - PYREXIA [None]
  - RALES [None]
  - RASH [None]
  - RESPIRATORY DISORDER [None]
  - RHONCHI [None]
  - TACHYCARDIA [None]
  - TACHYPNOEA [None]
  - TRACHEITIS [None]
  - VOMITING [None]
  - WHEEZING [None]
